FAERS Safety Report 9460367 (Version 2)
Quarter: 2013Q3

REPORT INFORMATION
  Report Type: Spontaneous
  Country: US (occurrence: US)
  Receive Date: 20130815
  Receipt Date: 20130905
  Transmission Date: 20140515
  Serious: Yes (Other)
  Sender: FDA-Public Use
  Company Number: US-PFIZER INC-2013237189

PATIENT
  Age: 65 Year
  Sex: Male
  Weight: 88.44 kg

DRUGS (6)
  1. LIPITOR [Suspect]
     Dosage: 80 MG, DAILY
     Route: 048
     Dates: start: 201105
  2. ATORVASTATIN CALCIUM [Suspect]
     Dosage: UNK
     Dates: start: 2012
  3. CLOPIDOGREL SULFATE [Suspect]
     Indication: ANTICOAGULANT THERAPY
     Dosage: UNK
     Dates: start: 2012
  4. PLAVIX [Suspect]
     Indication: ANTICOAGULANT THERAPY
     Dosage: 75 MG, DAILY
     Dates: start: 201105
  5. LISINOPRIL [Concomitant]
     Indication: HYPERTENSION
     Dosage: 40 MG, DAILY
  6. METOPROLOL [Concomitant]
     Indication: HYPERTENSION
     Dosage: 50 MG, DAILY

REACTIONS (11)
  - Hernia [Unknown]
  - Joint injury [Unknown]
  - Pruritus [Unknown]
  - Rash macular [Recovering/Resolving]
  - Rash [Recovering/Resolving]
  - Blister [Recovering/Resolving]
  - Urticaria [Recovering/Resolving]
  - Pain [Unknown]
  - Nausea [Unknown]
  - Swelling [Unknown]
  - Eczema [Unknown]
